FAERS Safety Report 11898341 (Version 1)
Quarter: 2016Q1

REPORT INFORMATION
  Report Type: Spontaneous
  Country: US (occurrence: US)
  Receive Date: 20160108
  Receipt Date: 20160108
  Transmission Date: 20160526
  Serious: Yes (Other)
  Sender: FDA-Public Use
  Company Number: US-AMGEN-USASP2016000953

PATIENT
  Age: 61 Year
  Sex: Male

DRUGS (2)
  1. PROLIA [Suspect]
     Active Substance: DENOSUMAB
     Indication: OSTEOPOROSIS
     Dosage: UNK, UNK
     Route: 065
     Dates: start: 201312
  2. FORTEO [Concomitant]
     Active Substance: TERIPARATIDE
     Dosage: UNK
     Dates: start: 201502

REACTIONS (2)
  - Acute kidney injury [Unknown]
  - Hypercalcaemia [Unknown]
